FAERS Safety Report 7942150-9 (Version None)
Quarter: 2011Q4

REPORT INFORMATION
  Report Type: 
  Country: None (occurrence: None)
  Receive Date: 20111128
  Receipt Date: 20111118
  Transmission Date: 20120403
  Serious: Yes (Other)
  Sender: FDA-Public Use
  Company Number: US-BAYER-2011-045345

PATIENT
  Age: 25 Year
  Sex: Female
  Weight: 104.31 kg

DRUGS (6)
  1. YAZ [Suspect]
     Indication: ORAL CONTRACEPTION
     Dosage: UNK
     Route: 048
     Dates: start: 20070101, end: 20080101
  2. YAZ [Suspect]
     Indication: PREMENSTRUAL SYNDROME
  3. IMITREX [Concomitant]
     Dosage: UNK
     Dates: start: 20010101
  4. VITAMIN TAB [Concomitant]
     Indication: UNEVALUABLE EVENT
     Dosage: UNK
     Dates: start: 20090701
  5. METHYLDOPA [Concomitant]
  6. METFORMIN HCL [Concomitant]
     Indication: POLYCYSTIC OVARIES
     Dosage: UNK
     Dates: start: 20070101, end: 20090101

REACTIONS (7)
  - BILIARY DYSKINESIA [None]
  - DYSPEPSIA [None]
  - PAIN [None]
  - NAUSEA [None]
  - INJURY [None]
  - ABDOMINAL PAIN UPPER [None]
  - VOMITING [None]
